FAERS Safety Report 9465807 (Version 5)
Quarter: 2013Q4

REPORT INFORMATION
  Report Type: Spontaneous
  Country: IT (occurrence: IT)
  Receive Date: 20130820
  Receipt Date: 20131031
  Transmission Date: 20140711
  Serious: Yes (Other)
  Sender: FDA-Public Use
  Company Number: IT-PFIZER INC-2013239639

PATIENT
  Age: 84 Year
  Sex: Female

DRUGS (7)
  1. ALPRAZOLAM [Suspect]
     Indication: DEPRESSION
     Dosage: 1 DF, 1X/DAY
     Route: 048
     Dates: start: 20120424, end: 20130423
  2. ALPRAZOLAM [Suspect]
     Dosage: UNK
     Route: 048
     Dates: start: 20130424
  3. MIRTAZAPINE [Suspect]
     Indication: DEPRESSION
     Dosage: 1 DF, 1X/DAY
     Route: 048
     Dates: start: 20120424, end: 20130423
  4. MIRTAZAPINE [Suspect]
     Dosage: UNK
     Route: 048
     Dates: start: 20130424
  5. MIRAPEXIN [Suspect]
     Indication: PARKINSON^S DISEASE
     Dosage: 2.1 MG, 1X/DAY
     Route: 048
     Dates: start: 20120424, end: 20130423
  6. MIRAPEXIN [Suspect]
     Dosage: 1.5 MG, UNK
     Dates: start: 20130424
  7. SINEMET [Suspect]
     Indication: PARKINSON^S DISEASE
     Dosage: 1 DF, 1X/DAY (100/25)
     Route: 048
     Dates: start: 20120424, end: 20130423

REACTIONS (1)
  - Sopor [Recovering/Resolving]
